FAERS Safety Report 9931256 (Version 1)
Quarter: 2014Q1

REPORT INFORMATION
  Report Type: Report from Study
  Country: US (occurrence: US)
  Receive Date: 20140228
  Receipt Date: 20140228
  Transmission Date: 20141002
  Serious: Yes (Death)
  Sender: FDA-Public Use
  Company Number: US-ROCHE-1335123

PATIENT
  Age: 57 Year
  Sex: Female
  Weight: 54.03 kg

DRUGS (29)
  1. AVASTIN [Suspect]
     Indication: COLON CANCER
     Route: 042
     Dates: start: 20120911
  2. AVASTIN [Suspect]
     Indication: LYMPHOMA
     Route: 042
     Dates: start: 20121002
  3. AVASTIN [Suspect]
     Route: 042
     Dates: start: 20121023
  4. AVASTIN [Suspect]
     Route: 042
     Dates: start: 20120124
  5. XELODA [Suspect]
     Indication: COLON CANCER
     Dosage: 500 MG TAKE 3 TWO DAILY FOR 14 DAYS, THEN OFF FOR 7 DAYS
     Route: 048
     Dates: start: 20120911
  6. XELODA [Suspect]
     Indication: LYMPHOMA
     Dosage: 500 MG TAKE 3 TWO DAILY FOR 14 DAYS, THEN OFF FOR 7 DAYS
     Route: 048
     Dates: start: 20121023
  7. KYTRIL [Suspect]
     Indication: PRODUCT USED FOR UNKNOWN INDICATION
     Route: 042
  8. VECTIBIX [Concomitant]
     Indication: COLON CANCER METASTATIC
     Route: 042
     Dates: start: 20121204, end: 20121204
  9. DIPHENHYDRAMINE HCL [Concomitant]
     Indication: HYPERSENSITIVITY
     Route: 041
  10. HYDROCORTISONE SODIUM SUCCINATE [Concomitant]
     Indication: HYPERSENSITIVITY
     Route: 042
  11. METHYLPREDNISOLONE SODIUM SUCCINATE [Concomitant]
     Indication: HYPERSENSITIVITY
     Route: 042
  12. OXALIPLATIN [Concomitant]
     Route: 042
  13. FLUOROURACIL [Concomitant]
     Route: 040
  14. FLUOROURACIL [Concomitant]
     Dosage: CIV PUMP
     Route: 041
  15. PALONOSETRON HYDROCHLORIDE [Concomitant]
     Route: 065
  16. METFORMIN HYDROCHLORIDE [Concomitant]
     Dosage: SUSTAINED RELEASE 24HR
     Route: 048
  17. PAXIL [Concomitant]
     Route: 048
  18. PRILOSEC [Concomitant]
     Dosage: TAKE BEFORE EATING
     Route: 048
  19. TRAMADOL [Concomitant]
     Route: 048
  20. MAG OXIDE [Concomitant]
     Dosage: QID
     Route: 048
  21. HYDROCORTISONE ACETATE [Concomitant]
     Dosage: PRN
     Route: 061
  22. TRIPLE MIX - (MAALOX, BENADRYL, LIDOCAINE VISCOUS) [Concomitant]
     Dosage: 1 TEASPOON SWISH AND SWALLOW AS DIRECTED
     Route: 048
  23. DEXAMETHASONE SODIUM PHOSPHATE [Concomitant]
     Route: 048
  24. DEXAMETHASONE SODIUM PHOSPHATE [Concomitant]
     Dosage: PRN, TAKE FIRST 5 DAYS S/P CHEMO
     Route: 048
  25. ETOPOSIDE [Concomitant]
     Route: 040
  26. DIPHENOXYLATE/ATROPINE [Concomitant]
     Dosage: 2.5-0.25 MG
     Route: 048
  27. REGLAN [Concomitant]
  28. MORPHINE SULFATE [Concomitant]
     Route: 048
  29. TEMSIROLIMUS [Concomitant]
     Route: 040

REACTIONS (17)
  - Disease progression [Fatal]
  - Pain [Unknown]
  - Nausea [Not Recovered/Not Resolved]
  - Vomiting [Not Recovered/Not Resolved]
  - Fistula discharge [Not Recovered/Not Resolved]
  - Asthenia [Not Recovered/Not Resolved]
  - Abdominal pain [Unknown]
  - Decreased appetite [Unknown]
  - Weight decreased [Not Recovered/Not Resolved]
  - Mucosal inflammation [Not Recovered/Not Resolved]
  - Acne [Unknown]
  - Iron deficiency anaemia [Not Recovered/Not Resolved]
  - Fatigue [Unknown]
  - Haemorrhage [Unknown]
  - Abdominal tenderness [Unknown]
  - White blood cell count increased [Unknown]
  - Platelet count increased [Unknown]
